FAERS Safety Report 4301252-9 (Version None)
Quarter: 2004Q1

REPORT INFORMATION
  Report Type: 
  Country: None (occurrence: None)
  Receive Date: 20040220
  Receipt Date: 20040220
  Transmission Date: 20041129
  Serious: No
  Sender: FDA-Public Use
  Company Number: None

PATIENT
  Sex: Female
  Weight: 86.1834 kg

DRUGS (4)
  1. PAXIL [Suspect]
     Indication: MIGRAINE
     Dosage: 10-30 MG/DAILY(?)
     Dates: start: 19991128, end: 20000602
  2. TRAZEDON? [Suspect]
     Indication: MIGRAINE
     Dosage: 75 MG /DAY
     Dates: start: 19880101, end: 20020101
  3. METHERGINE [Concomitant]
  4. MAXALT [Concomitant]

REACTIONS (1)
  - BREAST CANCER FEMALE [None]
